FAERS Safety Report 4522128-8 (Version None)
Quarter: 2004Q4

REPORT INFORMATION
  Report Type: 
  Country: None (occurrence: None)
  Receive Date: 20041207
  Receipt Date: 20041112
  Transmission Date: 20050328
  Serious: Yes (Other)
  Sender: FDA-Public Use
  Company Number: US-JNJFOC-20041200278

PATIENT
  Sex: Male
  Weight: 75.7507 kg

DRUGS (7)
  1. MOTRIN [Suspect]
     Dates: start: 19930101
  2. CELEBREX [Suspect]
     Indication: BACK PAIN
     Dates: start: 20030101
  3. UNKNOWN PSYCH DRUG (ALL OTHER THERAPEUTIC PRODUCTS) [Suspect]
  4. ALCOHOL (ETHANOL) [Suspect]
  5. DILANTIN [Concomitant]
  6. DIABETA [Concomitant]
  7. UNSPECIFIED MEDICATIONS (ALL OTHER THERAPEUTIC PRODUCTS) [Concomitant]

REACTIONS (13)
  - ALCOHOL USE [None]
  - BACK PAIN [None]
  - BODY HEIGHT DECREASED [None]
  - DRUG INEFFECTIVE [None]
  - FALL [None]
  - FEELING DRUNK [None]
  - FOOT FRACTURE [None]
  - GASTROOESOPHAGEAL REFLUX DISEASE [None]
  - HAEMATEMESIS [None]
  - HEPATIC CIRRHOSIS [None]
  - HEPATIC PAIN [None]
  - SPINAL DISORDER [None]
  - ULCER [None]
